FAERS Safety Report 5636521-3 (Version None)
Quarter: 2008Q1

REPORT INFORMATION
  Report Type: 
  Country: None (occurrence: None)
  Receive Date: 20080220
  Receipt Date: 20080204
  Transmission Date: 20080703
  Serious: Yes (Hospitalization)
  Sender: FDA-Public Use
  Company Number: S08-FRA-00545-01

PATIENT
  Sex: Female

DRUGS (1)
  1. ESCITALOPRAM [Suspect]
     Dosage: 20 MG QD PO
     Route: 048

REACTIONS (5)
  - BLOOD PRESSURE INCREASED [None]
  - COLD SWEAT [None]
  - HEADACHE [None]
  - NAUSEA [None]
  - TREMOR [None]
